FAERS Safety Report 6596039-0 (Version None)
Quarter: 2010Q1

REPORT INFORMATION
  Report Type: 
  Country: None (occurrence: None)
  Receive Date: 20100223
  Receipt Date: 20100216
  Transmission Date: 20100710
  Serious: Yes (Other)
  Sender: FDA-Public Use
  Company Number: IL-MPIJNJ-2010-01304

PATIENT

DRUGS (2)
  1. VELCADE [Suspect]
     Indication: MULTIPLE MYELOMA
  2. DOXIL                              /00330902/ [Suspect]
     Indication: MULTIPLE MYELOMA

REACTIONS (2)
  - COGNITIVE DISORDER [None]
  - DISORIENTATION [None]
